FAERS Safety Report 4513388-8 (Version None)
Quarter: 2004Q4

REPORT INFORMATION
  Report Type: 
  Country: None (occurrence: None)
  Receive Date: 20041124
  Receipt Date: 20041110
  Transmission Date: 20050328
  Serious: Yes (Disabling)
  Sender: FDA-Public Use
  Company Number: A02200403371

PATIENT
  Age: 55 Year
  Sex: Male

DRUGS (7)
  1. PLAVIX [Suspect]
     Indication: CEREBROVASCULAR ACCIDENT
     Route: 048
  2. PLAVIX [Suspect]
     Indication: PROPHYLAXIS
     Route: 048
  3. PROPRANOLOL [Suspect]
     Indication: HYPERTENSION
     Route: 048
  4. TOCO (TOCOPHERYL ACETATE) CAPSULE 500 MG [Suspect]
     Indication: HYPERCHOLESTEROLAEMIA
     Route: 048
  5. ENGERIX B (HEPATIS B VACCINE) SUSENSION 20 MCG/SUSPENSION - 20 MCG [Suspect]
     Indication: IMMUNISATION
     Dosage: SEE IMAGE
     Route: 030
     Dates: start: 19950901, end: 19950901
  6. ENGERIX B (HEPATIS B VACCINE) SUSENSION 20 MCG/SUSPENSION - 20 MCG [Suspect]
     Indication: IMMUNISATION
     Dosage: SEE IMAGE
     Route: 030
     Dates: start: 19951001, end: 19951001
  7. TETAVAX (TETANUS ANTITOXIN) [Suspect]
     Indication: IMMUNISATION
     Route: 030
     Dates: start: 19930813, end: 19930813

REACTIONS (5)
  - ASTHENIA [None]
  - MUSCULAR WEAKNESS [None]
  - MYALGIA [None]
  - MYOFASCITIS [None]
  - VITAMIN B12 DECREASED [None]
